FAERS Safety Report 11857764 (Version 1)
Quarter: 2015Q4

REPORT INFORMATION
  Report Type: Spontaneous
  Country: US (occurrence: None)
  Receive Date: 20151221
  Receipt Date: 20151221
  Transmission Date: 20160305
  Serious: Yes (Other)
  Sender: FDA-Public Use
  Company Number: None

PATIENT
  Age: 59 Year
  Sex: Male
  Weight: 90.72 kg

DRUGS (4)
  1. CLOZAPINE. [Suspect]
     Active Substance: CLOZAPINE
     Indication: PSYCHOTIC DISORDER
     Route: 048
     Dates: start: 20070701, end: 20151216
  2. RISPERDONE [Concomitant]
     Active Substance: RISPERIDONE
  3. KEPPRA [Concomitant]
     Active Substance: LEVETIRACETAM
  4. LAMOTRIGINE. [Concomitant]
     Active Substance: LAMOTRIGINE

REACTIONS (2)
  - Constipation [None]
  - Intestinal obstruction [None]

NARRATIVE: CASE EVENT DATE: 20151216
